FAERS Safety Report 23707418 (Version 2)
Quarter: 2024Q2

REPORT INFORMATION
  Report Type: Spontaneous
  Country: FR (occurrence: FR)
  Receive Date: 20240404
  Receipt Date: 20240423
  Transmission Date: 20240715
  Serious: Yes (Other)
  Sender: FDA-Public Use
  Company Number: FR-CHEPLA-2024003980

PATIENT
  Age: 28 Year
  Sex: Male

DRUGS (7)
  1. RIFAMPIN [Suspect]
     Active Substance: RIFAMPIN
     Indication: Disseminated tuberculosis
     Dosage: 300 MG, 6 PILLS
  2. ISONIAZID [Suspect]
     Active Substance: ISONIAZID
     Indication: Disseminated tuberculosis
     Dosage: 50 MG, 6 PILLS
  3. PYRAZINAMIDE [Suspect]
     Active Substance: PYRAZINAMIDE
     Indication: Disseminated tuberculosis
     Dosage: 120 MG, 6 PILLS
  4. ETHAMBUTOL [Suspect]
     Active Substance: ETHAMBUTOL HYDROCHLORIDE
     Indication: Disseminated tuberculosis
     Dosage: 500 MG, 2 PILLS
  5. PREDNISONE [Suspect]
     Active Substance: PREDNISONE
     Indication: Disseminated tuberculosis
     Dosage: 40 MG, QD
  6. PREDNISONE [Suspect]
     Active Substance: PREDNISONE
     Dosage: 100 MG, QD
  7. CERTOLIZUMAB [Concomitant]
     Active Substance: CERTOLIZUMAB
     Indication: Ankylosing spondylitis
     Dosage: UNK UNK, QOW

REACTIONS (4)
  - Immune reconstitution inflammatory syndrome associated tuberculosis [Recovering/Resolving]
  - Pyrexia [Recovering/Resolving]
  - Hilar lymphadenopathy [Recovering/Resolving]
  - Lymphadenopathy mediastinal [Recovering/Resolving]
